FAERS Safety Report 14336701 (Version 6)
Quarter: 2018Q3

REPORT INFORMATION
  Report Type: Spontaneous
  Country: CA (occurrence: CA)
  Receive Date: 20171229
  Receipt Date: 20180904
  Transmission Date: 20181010
  Serious: Yes (Other)
  Sender: FDA-Public Use
  Company Number: CA-CELLTRION INC.-2017CA003531

PATIENT

DRUGS (15)
  1. INFLECTRA [Suspect]
     Active Substance: INFLIXIMAB-DYYB
     Dosage: 480 MG, CYCLIC Q 6 WEEKS
     Route: 042
     Dates: start: 20180118
  2. INFLECTRA [Suspect]
     Active Substance: INFLIXIMAB-DYYB
     Dosage: 480 MG (3MG/KG), CYCLIC Q 6 WEEKS
     Route: 065
     Dates: start: 20180524
  3. ASA [Concomitant]
     Active Substance: ASPIRIN
     Dosage: 81 MG, 1X/DAY
     Route: 065
  4. ESOMEPRAZOLE [Concomitant]
     Active Substance: ESOMEPRAZOLE
     Dosage: UNK UNK, 1X/DAY
     Route: 048
  5. FUROSEMIDE. [Concomitant]
     Active Substance: FUROSEMIDE
     Dosage: 3 DF, DAILY (2 TABLETS AM AND 1 TABLET AT NOON)
     Route: 065
  6. FUROSEMIDE. [Concomitant]
     Active Substance: FUROSEMIDE
     Dosage: 160 MG, 1X/DAY
     Route: 048
  7. INFLECTRA [Suspect]
     Active Substance: INFLIXIMAB-DYYB
     Indication: RHEUMATOID ARTHRITIS
     Dosage: 504 MG,CYCLIC (EVERY 0, 2, 6 WEEKS, THEN EVERY 8 WEEKS FOR 6 MONTHS)
     Route: 042
     Dates: start: 20170309, end: 20171206
  8. INFLECTRA [Suspect]
     Active Substance: INFLIXIMAB-DYYB
     Dosage: 480 MG (3MG/KG), CYCLIC Q 6 WEEKS
     Route: 065
     Dates: start: 20180412
  9. KCL [Concomitant]
     Active Substance: POTASSIUM CHLORIDE
     Dosage: 32 MG, 1X/DAY
     Route: 048
  10. MAGNESIUM                          /00123201/ [Concomitant]
     Dosage: 100 MG, UNK
     Route: 048
  11. INFLECTRA [Suspect]
     Active Substance: INFLIXIMAB-DYYB
     Dosage: 480 MG (3MG/KG), CYCLIC Q 6 WEEKS
     Route: 065
     Dates: start: 20180705
  12. ALLOPURINOL. [Concomitant]
     Active Substance: ALLOPURINOL
     Dosage: 300 MG, 1X/DAY
     Route: 048
  13. COLCHICINE. [Concomitant]
     Active Substance: COLCHICINE
     Dosage: 0.6 MG, BID (2X/DAY)
     Route: 065
  14. TEMISARTAN [Concomitant]
     Dosage: 40 MG, 1X/DAY
     Route: 065
  15. FUROSEMIDE. [Concomitant]
     Active Substance: FUROSEMIDE
     Dosage: 160 MG, 1X/DAY
     Route: 048

REACTIONS (11)
  - Pertussis [Unknown]
  - Pyrexia [Unknown]
  - Arthritis [Not Recovered/Not Resolved]
  - Fibromyalgia [Unknown]
  - Incorrect route of drug administration [Unknown]
  - Weight decreased [Unknown]
  - Intercepted drug prescribing error [Unknown]
  - Blood pressure fluctuation [Unknown]
  - Condition aggravated [Not Recovered/Not Resolved]
  - Product use issue [Unknown]
  - Hypoaesthesia [Not Recovered/Not Resolved]
